FAERS Safety Report 7946518-6 (Version None)
Quarter: 2011Q4

REPORT INFORMATION
  Report Type: 
  Country: None (occurrence: None)
  Receive Date: 20111123
  Receipt Date: 20111115
  Transmission Date: 20120403
  Serious: Yes (Other)
  Sender: FDA-Public Use
  Company Number: 2011P1010616

PATIENT
  Age: 28 Year
  Sex: Female

DRUGS (1)
  1. ALBENDAZOLE (NO PREF. NAME) [Suspect]
     Indication: HELMINTHIC INFECTION
     Dosage: 400 MG;QD

REACTIONS (6)
  - HEPATITIS [None]
  - HEADACHE [None]
  - DECREASED APPETITE [None]
  - CONSTIPATION [None]
  - PYREXIA [None]
  - ASTHENIA [None]
